FAERS Safety Report 9696920 (Version 3)
Quarter: 2015Q3

REPORT INFORMATION
  Report Type: Spontaneous
  Country: US (occurrence: US)
  Receive Date: 20131119
  Receipt Date: 20150803
  Transmission Date: 20151125
  Serious: Yes (Other)
  Sender: FDA-Public Use
  Company Number: US-GILEAD-2007-0013857

PATIENT
  Age: 69 Year
  Sex: Female
  Weight: 55.34 kg

DRUGS (11)
  1. HYDROXYCHLOROQUINE [Concomitant]
     Active Substance: HYDROXYCHLOROQUINE
     Indication: RHEUMATOID ARTHRITIS
     Route: 048
  2. TOPROL XL [Concomitant]
     Active Substance: METOPROLOL SUCCINATE
     Indication: DEPRESSION
     Route: 048
  3. SPIRONOLACTONE. [Concomitant]
     Active Substance: SPIRONOLACTONE
     Indication: CHRONIC OBSTRUCTIVE PULMONARY DISEASE
     Route: 048
  4. PREDNISONE. [Concomitant]
     Active Substance: PREDNISONE
     Indication: CHRONIC OBSTRUCTIVE PULMONARY DISEASE
     Route: 048
  5. EVISTA [Concomitant]
     Active Substance: RALOXIFENE HYDROCHLORIDE
     Indication: OSTEOPOROSIS
     Route: 048
  6. NORVASC [Concomitant]
     Active Substance: AMLODIPINE BESYLATE
     Indication: HYPERTENSION
     Route: 048
  7. LASIX [Concomitant]
     Active Substance: FUROSEMIDE
     Indication: PULMONARY ARTERIAL HYPERTENSION
     Route: 048
  8. METHOTREXATE [Concomitant]
     Active Substance: METHOTREXATE
     Indication: RHEUMATOID ARTHRITIS
     Route: 048
  9. LETAIRIS [Suspect]
     Active Substance: AMBRISENTAN
     Indication: PULMONARY ARTERIAL HYPERTENSION
     Route: 048
     Dates: start: 20070906
  10. LANOXIN [Concomitant]
     Active Substance: DIGOXIN
     Indication: ARRHYTHMIA
     Route: 048
  11. SPIRONOLACTONE. [Concomitant]
     Active Substance: SPIRONOLACTONE
     Indication: ASTHMA

REACTIONS (1)
  - Oedema peripheral [Not Recovered/Not Resolved]

NARRATIVE: CASE EVENT DATE: 20070920
